FAERS Safety Report 13421582 (Version 1)
Quarter: 2017Q2

REPORT INFORMATION
  Report Type: Spontaneous
  Country: CN (occurrence: CN)
  Receive Date: 20170410
  Receipt Date: 20170410
  Transmission Date: 20170830
  Serious: Yes (Other)
  Sender: FDA-Public Use
  Company Number: CN-ROCHE-1918373

PATIENT
  Age: 3 Year
  Sex: Male
  Weight: 16 kg

DRUGS (6)
  1. RIBAVIRIN. [Concomitant]
     Active Substance: RIBAVIRIN
     Indication: INFECTION
     Route: 041
     Dates: start: 20160923, end: 20161003
  2. ROCEPHIN [Suspect]
     Active Substance: CEFTRIAXONE SODIUM
     Indication: INFECTION
     Route: 041
     Dates: start: 20160921, end: 20160924
  3. ZINC GLUCONATE [Concomitant]
     Active Substance: ZINC GLUCONATE
     Indication: PYREXIA
     Route: 048
     Dates: start: 20160921, end: 20160925
  4. IBUPROFEN. [Concomitant]
     Active Substance: IBUPROFEN
     Indication: PYREXIA
     Route: 048
     Dates: start: 20160921, end: 20160925
  5. GLUCUROLACTONE [Concomitant]
     Active Substance: GLUCUROLACTONE
     Indication: LIVER INJURY
     Route: 048
     Dates: start: 20160922, end: 20161007
  6. AZITHROMYCIN ANHYDROUS. [Concomitant]
     Active Substance: AZITHROMYCIN ANHYDROUS
     Indication: INFECTION
     Route: 048
     Dates: start: 20160921, end: 20160925

REACTIONS (1)
  - Cholelithiasis [Recovered/Resolved]

NARRATIVE: CASE EVENT DATE: 20160924
